FAERS Safety Report 8167748-7 (Version None)
Quarter: 2012Q1

REPORT INFORMATION
  Report Type: 
  Country: None (occurrence: None)
  Receive Date: 20120227
  Receipt Date: 20120223
  Transmission Date: 20120608
  Serious: No
  Sender: FDA-Public Use
  Company Number: US-PFIZER INC-2012047432

PATIENT
  Sex: Female
  Weight: 95.2 kg

DRUGS (7)
  1. BENADRYL [Suspect]
     Indication: RASH
     Dosage: 50 MG, 2X/DAY
     Route: 048
     Dates: start: 20120219
  2. CHANTIX [Suspect]
     Indication: SMOKING CESSATION THERAPY
     Dosage: 0.5 MG, DAILY
     Route: 048
     Dates: start: 20120201, end: 20120203
  3. CHANTIX [Suspect]
     Dosage: 0.5 MG, 2X/DAY
     Route: 048
     Dates: start: 20120204, end: 20120207
  4. SIMVASTATIN [Concomitant]
     Indication: BLOOD CHOLESTEROL ABNORMAL
     Dosage: 20 MG, DAILY
     Dates: start: 20110101
  5. MEDROXYPROGESTERONE [Concomitant]
     Indication: HORMONE REPLACEMENT THERAPY
     Dosage: 10 MG, DAILY
     Dates: start: 20110101
  6. CHANTIX [Suspect]
     Dosage: 1 MG, 2X/DAY
     Route: 048
     Dates: start: 20120208, end: 20120201
  7. CHANTIX [Suspect]
     Dosage: UNK
     Route: 048
     Dates: start: 20120201

REACTIONS (2)
  - DRUG INEFFECTIVE [None]
  - RASH GENERALISED [None]
